FAERS Safety Report 10089071 (Version 1)
Quarter: 2014Q2

REPORT INFORMATION
  Report Type: Spontaneous
  Country: US (occurrence: US)
  Receive Date: 20140421
  Receipt Date: 20140421
  Transmission Date: 20141212
  Serious: Yes (Life-Threatening, Hospitalization)
  Sender: FDA-Public Use
  Company Number: US-JNJFOC-20140413838

PATIENT
  Sex: Male
  Weight: 100.11 kg

DRUGS (7)
  1. XARELTO [Suspect]
     Indication: DEEP VEIN THROMBOSIS
     Route: 048
     Dates: start: 20131009, end: 20131014
  2. FENOFIBRATE [Concomitant]
     Route: 065
  3. FISH OIL [Concomitant]
     Route: 065
  4. GLIMEPIRIDE [Concomitant]
     Route: 065
  5. LOSARTAN [Concomitant]
     Route: 065
  6. METFORMIN [Concomitant]
     Route: 065
  7. MULTIVITAMINS [Concomitant]
     Route: 065

REACTIONS (2)
  - Pulmonary embolism [Unknown]
  - Drug ineffective [Unknown]
